FAERS Safety Report 8502676-6 (Version None)
Quarter: 2012Q3

REPORT INFORMATION
  Report Type: 
  Country: None (occurrence: None)
  Receive Date: 20120711
  Receipt Date: 20120702
  Transmission Date: 20120928
  Serious: Yes (Other)
  Sender: FDA-Public Use
  Company Number: GB-SANOFI-AVENTIS-2012SA047518

PATIENT
  Age: 42 Year
  Sex: Female

DRUGS (3)
  1. ETHAMBUTOL HYDROCHLORIDE [Concomitant]
     Dosage: STRENGTH: 400MG
  2. PYRAZINAMIDE [Suspect]
     Indication: TUBERCULOSIS
     Route: 048
     Dates: start: 20120630, end: 20120701
  3. PAROXETINE [Concomitant]

REACTIONS (7)
  - EYE PAIN [None]
  - CONDITION AGGRAVATED [None]
  - OCULAR HYPERAEMIA [None]
  - VISION BLURRED [None]
  - EYE PRURITUS [None]
  - EYE INFLAMMATION [None]
  - UVEITIS [None]
